FAERS Safety Report 4917273-9 (Version None)
Quarter: 2006Q1

REPORT INFORMATION
  Report Type: 
  Country: None (occurrence: None)
  Receive Date: 20060221
  Receipt Date: 20050419
  Transmission Date: 20060701
  Serious: Yes (Hospitalization, Disabling)
  Sender: FDA-Public Use
  Company Number: US-MERCK-0504USA03822

PATIENT
  Age: 58 Year
  Sex: Male
  Weight: 143 kg

DRUGS (3)
  1. VIOXX [Suspect]
     Indication: OSTEOARTHRITIS
     Route: 048
     Dates: start: 20030915, end: 20030915
  2. VIOXX [Suspect]
     Route: 048
     Dates: start: 20030916, end: 20040901
  3. ASPIRIN [Concomitant]
     Route: 065

REACTIONS (4)
  - CARDIOVASCULAR DISORDER [None]
  - CEREBROVASCULAR ACCIDENT [None]
  - DEPRESSION [None]
  - VERTEBRAL ARTERY STENOSIS [None]
